FAERS Safety Report 6394205-0 (Version None)
Quarter: 2009Q4

REPORT INFORMATION
  Report Type: 
  Country: None (occurrence: None)
  Receive Date: 20091008
  Receipt Date: 20091002
  Transmission Date: 20100525
  Serious: Yes (Other)
  Sender: FDA-Public Use
  Company Number: US-GENENTECH-291690

PATIENT

DRUGS (2)
  1. BEVACIZUMAB [Suspect]
     Indication: METASTATIC MALIGNANT MELANOMA
     Dosage: 15 MG/KG, Q14D
     Route: 042
     Dates: start: 20090421
  2. INTERFERON ALFA [Suspect]
     Indication: METASTATIC MALIGNANT MELANOMA
     Dosage: UNK
     Route: 058
     Dates: start: 20090421

REACTIONS (1)
  - HYPOPHOSPHATAEMIA [None]
